FAERS Safety Report 20590285 (Version 10)
Quarter: 2022Q2

REPORT INFORMATION
  Report Type: Report from Study
  Country: US (occurrence: US)
  Receive Date: 20220314
  Receipt Date: 20220628
  Transmission Date: 20220720
  Serious: Yes (Hospitalization)
  Sender: FDA-Public Use
  Company Number: US-GILEAD-2022-0573574

PATIENT
  Age: 20 Year
  Sex: Female

DRUGS (12)
  1. AMBRISENTAN [Suspect]
     Active Substance: AMBRISENTAN
     Indication: Pulmonary hypertension
     Dosage: 10 MG, QD
     Route: 065
     Dates: start: 20190219
  2. AMBRISENTAN [Suspect]
     Active Substance: AMBRISENTAN
     Indication: Pulmonary arterial hypertension
     Dosage: 10 MG, QD
     Route: 065
     Dates: start: 20200727
  3. AMBRISENTAN [Suspect]
     Active Substance: AMBRISENTAN
     Dosage: 10 MG, QD
     Route: 065
     Dates: start: 20190216
  4. AMBRISENTAN [Suspect]
     Active Substance: AMBRISENTAN
     Dosage: 10 MG, QD
     Route: 065
     Dates: start: 202107
  5. AMBRISENTAN [Suspect]
     Active Substance: AMBRISENTAN
     Dosage: 10 MG, QD
     Route: 065
     Dates: start: 201908
  6. REMODULIN [Suspect]
     Active Substance: TREPROSTINIL
     Indication: Pulmonary hypertension
     Dosage: 35 NG, Q1MINUTE
     Route: 065
     Dates: start: 202203
  7. REMODULIN [Suspect]
     Active Substance: TREPROSTINIL
     Indication: Pulmonary arterial hypertension
     Dosage: 53.6 NG, Q1MINUTE
     Route: 065
     Dates: start: 20220318
  8. REMODULIN [Suspect]
     Active Substance: TREPROSTINIL
     Dosage: 54 NG, Q1MINUTE
     Route: 065
     Dates: start: 20220316
  9. REMODULIN [Suspect]
     Active Substance: TREPROSTINIL
     Dosage: 69 NG, Q1MINUTE
     Route: 065
     Dates: end: 202203
  10. VELETRI [Suspect]
     Active Substance: EPOPROSTENOL
     Indication: Pulmonary arterial hypertension
     Dosage: 35 NG, Q1MINUTE
     Route: 065
     Dates: start: 20210302, end: 20220315
  11. VELETRI [Suspect]
     Active Substance: EPOPROSTENOL
     Dosage: 34 NG, Q1MINUTE
     Route: 065
     Dates: start: 202206
  12. ADCIRCA [Concomitant]
     Active Substance: TADALAFIL
     Indication: Pulmonary hypertension
     Dosage: 40 MG, QD
     Route: 065
     Dates: start: 202107

REACTIONS (14)
  - Complication associated with device [Unknown]
  - Dyspnoea [Unknown]
  - Device dislocation [Not Recovered/Not Resolved]
  - Myalgia [Unknown]
  - Headache [Unknown]
  - Diarrhoea [Unknown]
  - Pain in extremity [Unknown]
  - Vaginal haemorrhage [Unknown]
  - Dyspnoea [Recovering/Resolving]
  - Fluid retention [Unknown]
  - Oedema [Unknown]
  - Swelling [Unknown]
  - Pain [Unknown]
  - Headache [Unknown]

NARRATIVE: CASE EVENT DATE: 20220311
